FAERS Safety Report 4315654-8 (Version None)
Quarter: 2004Q1

REPORT INFORMATION
  Report Type: 
  Country: None (occurrence: None)
  Receive Date: 20040311
  Receipt Date: 20040304
  Transmission Date: 20041129
  Serious: Yes (Other)
  Sender: FDA-Public Use
  Company Number: US-BRISTOL-MYERS SQUIBB COMPANY-12524237

PATIENT
  Age: 78 Year
  Sex: Male
  Weight: 68 kg

DRUGS (8)
  1. TEQUIN [Suspect]
     Indication: PROSTATITIS
     Dosage: FOUR-WEEK COURSE
     Route: 048
     Dates: start: 20040101
  2. FOSINOPRIL SODIUM [Concomitant]
  3. FLOMAX [Concomitant]
  4. ZOCOR [Concomitant]
  5. TOPROL-XL [Concomitant]
  6. NEXIUM [Concomitant]
  7. LASIX [Concomitant]
  8. COUMADIN [Concomitant]
     Dosage: 5 MG M-W-F-S AND 2.5 MG ON REMAINING DAYS

REACTIONS (2)
  - HYPERGLYCAEMIA [None]
  - INTERNATIONAL NORMALISED RATIO INCREASED [None]
